FAERS Safety Report 8862641 (Version 1)
Quarter: 2012Q4

REPORT INFORMATION
  Report Type: 
  Country: BR (occurrence: BR)
  Receive Date: 20121026
  Receipt Date: 20121026
  Transmission Date: 20130627
  Serious: Yes (Other)
  Sender: FDA-Public Use
  Company Number: BR-ELI_LILLY_AND_COMPANY-BR201210004999

PATIENT
  Age: 42 None
  Sex: Female
  Weight: 53 kg

DRUGS (8)
  1. CYMBALTA [Suspect]
     Indication: FIBROMYALGIA
     Dosage: 30 mg, qd
     Route: 048
     Dates: start: 20120412
  2. CYMBALTA [Suspect]
     Dosage: 60 mg, qd
     Route: 048
     Dates: start: 20121007
  3. CLONAZEPAN [Concomitant]
     Dosage: UNK, unknown
     Route: 048
  4. NOVALGINA [Concomitant]
     Dosage: UNK, unknown
     Route: 065
  5. LYRICA [Concomitant]
     Dosage: UNK, unknown
     Route: 065
  6. CYCLOBENZAPRIN HYDROCHLORIDE [Concomitant]
     Dosage: UNK, unknown
     Route: 065
  7. ESTRADIOL VALERATE [Concomitant]
     Dosage: 1 mg, unknown
     Route: 065
  8. METHADONE HYDROCHLORIDE [Concomitant]
     Dosage: UNK, unknown
     Route: 065

REACTIONS (5)
  - Loss of control of legs [Recovered/Resolved]
  - Chest pain [Recovered/Resolved]
  - Intervertebral disc protrusion [Recovered/Resolved]
  - Drug dose omission [Recovered/Resolved]
  - Hypoaesthesia [Recovered/Resolved]
